FAERS Safety Report 6877486-6 (Version None)
Quarter: 2010Q3

REPORT INFORMATION
  Report Type: 
  Country: None (occurrence: None)
  Receive Date: 20100727
  Receipt Date: 20091014
  Transmission Date: 20110219
  Serious: No
  Sender: FDA-Public Use
  Company Number: US-ABBOTT-09P-163-0603653-00

PATIENT
  Sex: Female

DRUGS (2)
  1. SYNTHROID [Suspect]
     Indication: HYPOTHYROIDISM
     Dates: start: 19860101, end: 20091013
  2. SYNTHROID [Suspect]
     Dates: start: 20091014

REACTIONS (3)
  - DYSGEUSIA [None]
  - INCORRECT DOSE ADMINISTERED [None]
  - PAROSMIA [None]
